FAERS Safety Report 9061717 (Version 1)
Quarter: 2013Q1

REPORT INFORMATION
  Report Type: Spontaneous
  Country: US (occurrence: None)
  Receive Date: 20130118
  Receipt Date: 20130118
  Transmission Date: 20140127
  Serious: Yes (Death, Other)
  Sender: FDA-Public Use
  Company Number: 2013MA000188

PATIENT
  Age: 23 Year
  Sex: Male

DRUGS (5)
  1. KADIAN [Suspect]
     Indication: PRODUCT USED FOR UNKNOWN INDICATION
     Route: 048
  2. ACETAMINOPHEN\HYDROCODONE [Suspect]
     Route: 048
  3. CARISOPRODOL [Suspect]
     Route: 048
  4. ALPRAZOLAM [Suspect]
     Route: 048
  5. AMPHETAMINE [Suspect]
     Route: 048

REACTIONS (1)
  - Completed suicide [None]
